FAERS Safety Report 14519477 (Version 1)
Quarter: 2018Q1

REPORT INFORMATION
  Report Type: Report from Study
  Country: ES (occurrence: ES)
  Receive Date: 20180212
  Receipt Date: 20180212
  Transmission Date: 20180509
  Serious: Yes (Hospitalization, Other)
  Sender: FDA-Public Use
  Company Number: PHHO2010ES021015

PATIENT
  Age: 46 Year
  Sex: Female

DRUGS (3)
  1. SUNITINIB MALATE. [Suspect]
     Active Substance: SUNITINIB MALATE
     Indication: RENAL CELL CARCINOMA
     Dosage: 50 MG, QD (FOR 4 WEEKS ON AND 2 WEEKS OFF)
     Route: 048
     Dates: start: 20090909, end: 20091211
  2. IBUPROFEN. [Concomitant]
     Active Substance: IBUPROFEN
     Indication: PRODUCT USED FOR UNKNOWN INDICATION
     Dosage: UNK
     Route: 065
     Dates: start: 20090909
  3. VOTRIENT [Suspect]
     Active Substance: PAZOPANIB HYDROCHLORIDE
     Indication: RENAL CELL CARCINOMA
     Dosage: 800 MG, QD
     Route: 048
     Dates: start: 20091217, end: 20100129

REACTIONS (4)
  - Hypertension [Recovered/Resolved]
  - Headache [Unknown]
  - Eye pain [Unknown]
  - Retinopathy [Unknown]

NARRATIVE: CASE EVENT DATE: 20100104
